FAERS Safety Report 17018952 (Version 1)
Quarter: 2019Q4

REPORT INFORMATION
  Report Type: Spontaneous
  Country: CH (occurrence: CH)
  Receive Date: 20191112
  Receipt Date: 20191112
  Transmission Date: 20200122
  Serious: Yes (Congenital Anomaly, Other)
  Sender: FDA-Public Use
  Company Number: CH-SA-2019SA306429

PATIENT

DRUGS (3)
  1. EMADINE [Suspect]
     Active Substance: EMEDASTINE DIFUMARATE
     Indication: MATERNAL EXPOSURE DURING PREGNANCY
     Dosage: UNK UNK, PRN
     Route: 064
  2. FEXOFENADINE [Suspect]
     Active Substance: FEXOFENADINE HYDROCHLORIDE
     Indication: MATERNAL EXPOSURE DURING PREGNANCY
     Dosage: 180 MG PRN AS NECESSARY
     Route: 064
  3. ESCITALOPRAM OXALATE. [Suspect]
     Active Substance: ESCITALOPRAM OXALATE
     Indication: MATERNAL EXPOSURE DURING PREGNANCY
     Dosage: 10 MG QD   DATES DE D?BUT ET DE FIN DE TRAITEMENT NON CONNUES.
     Route: 064

REACTIONS (2)
  - Foetal exposure during pregnancy [Unknown]
  - Chromosomal deletion [Recovered/Resolved]

NARRATIVE: CASE EVENT DATE: 201809
